FAERS Safety Report 23107541 (Version 3)
Quarter: 2024Q1

REPORT INFORMATION
  Report Type: Other
  Country: CA (occurrence: None)
  Receive Date: 20231026
  Receipt Date: 20240131
  Transmission Date: 20240410
  Serious: No
  Sender: FDA-Public Use
  Company Number: CA-ROCHE-3446268

PATIENT
  Age: 56 Year
  Sex: Female

DRUGS (1)
  1. OCREVUS [Suspect]
     Active Substance: OCRELIZUMAB
     Indication: Relapsing-remitting multiple sclerosis
     Dosage: AT DAY 0 AND 14, THEN 600 MG EVERY 6 MONTH
     Route: 042
     Dates: start: 20220914

REACTIONS (8)
  - SARS-CoV-2 test positive [Recovering/Resolving]
  - Immunodeficiency [Unknown]
  - Bronchitis [Unknown]
  - Sinusitis [Unknown]
  - Conjunctivitis [Unknown]
  - Cough [Unknown]
  - Dysphagia [Not Recovered/Not Resolved]
  - Laryngitis [Unknown]

NARRATIVE: CASE EVENT DATE: 20231212
